FAERS Safety Report 7637210-6 (Version None)
Quarter: 2011Q3

REPORT INFORMATION
  Report Type: 
  Country: None (occurrence: None)
  Receive Date: 20110726
  Receipt Date: 20110713
  Transmission Date: 20111222
  Serious: Yes (Other)
  Sender: FDA-Public Use
  Company Number: PHHY2011JP63849

PATIENT
  Age: 48 Year
  Sex: Male

DRUGS (1)
  1. TEGRETOL [Suspect]
     Indication: TEMPORAL LOBE EPILEPSY
     Dosage: UNK UKN, UNK
     Route: 048
     Dates: start: 20090801

REACTIONS (1)
  - DRUG RASH WITH EOSINOPHILIA AND SYSTEMIC SYMPTOMS [None]
